FAERS Safety Report 6534842-3 (Version None)
Quarter: 2010Q1

REPORT INFORMATION
  Report Type: 
  Country: None (occurrence: None)
  Receive Date: 20100112
  Receipt Date: 20100106
  Transmission Date: 20100710
  Serious: Yes (Other)
  Sender: FDA-Public Use
  Company Number: PHHY2010CA00849

PATIENT
  Sex: Female

DRUGS (2)
  1. FEMARA [Suspect]
  2. TEGRETOL [Concomitant]
     Dosage: 300 MG, BID

REACTIONS (1)
  - VISUAL ACUITY REDUCED [None]
